FAERS Safety Report 5836882-6 (Version None)
Quarter: 2008Q3

REPORT INFORMATION
  Report Type: 
  Country: None (occurrence: None)
  Receive Date: 20080806
  Receipt Date: 20080806
  Transmission Date: 20090109
  Serious: Yes (Life-Threatening, Hospitalization)
  Sender: FDA-Public Use
  Company Number: None

PATIENT
  Age: 32 Year
  Sex: Female
  Weight: 49.8957 kg

DRUGS (1)
  1. CHANTIX [Suspect]
     Indication: SMOKING CESSATION THERAPY
     Dosage: TWICE DAILY PO
     Route: 048
     Dates: start: 20080710, end: 20080801

REACTIONS (9)
  - ABNORMAL BEHAVIOUR [None]
  - ALCOHOL USE [None]
  - AMNESIA [None]
  - DYSARTHRIA [None]
  - EMOTIONAL DISORDER [None]
  - MENTAL DISORDER [None]
  - MOOD SWINGS [None]
  - SPEECH DISORDER [None]
  - SUICIDAL IDEATION [None]
